FAERS Safety Report 6273932-X (Version None)
Quarter: 2009Q3

REPORT INFORMATION
  Report Type: 
  Country: None (occurrence: None)
  Receive Date: 20090720
  Receipt Date: 20090716
  Transmission Date: 20100115
  Serious: Yes (Death)
  Sender: FDA-Public Use
  Company Number: JP-MERCK-0907USA02467

PATIENT
  Age: 55 Year
  Sex: Male

DRUGS (4)
  1. HYZAAR [Suspect]
     Route: 048
  2. ADALAT CC [Concomitant]
     Route: 048
  3. CARDENALIN [Concomitant]
     Route: 048
  4. ZYLORIC [Concomitant]
     Route: 048

REACTIONS (1)
  - SUDDEN DEATH [None]
